FAERS Safety Report 17015913 (Version 2)
Quarter: 2019Q4

REPORT INFORMATION
  Report Type: Spontaneous
  Country: US (occurrence: US)
  Receive Date: 20191111
  Receipt Date: 20191113
  Transmission Date: 20200122
  Serious: Yes (Other)
  Sender: FDA-Public Use
  Company Number: PHHY2009US075438

PATIENT
  Age: 73 Year
  Sex: Female

DRUGS (6)
  1. ANGIOMAX [Suspect]
     Active Substance: BIVALIRUDIN
     Indication: PERCUTANEOUS CORONARY INTERVENTION
     Dosage: 0.75 MG/KG (BOLUS)
     Route: 042
     Dates: start: 20090910
  2. PLAVIX [Suspect]
     Active Substance: CLOPIDOGREL BISULFATE
     Indication: PRODUCT USED FOR UNKNOWN INDICATION
     Dosage: 600 MG
     Route: 048
  3. BENADRYL [Suspect]
     Active Substance: DIPHENHYDRAMINE HYDROCHLORIDE
     Indication: PREMEDICATION
     Dosage: 50 MG (SINGLE)
     Route: 042
  4. ANGIOMAX [Suspect]
     Active Substance: BIVALIRUDIN
     Dosage: 1.75 MG/KG (/HR)
     Route: 042
     Dates: start: 20090910
  5. PEPCID [Suspect]
     Active Substance: FAMOTIDINE
     Indication: PREMEDICATION
     Dosage: 20 MG (SINGLE)
     Route: 042
  6. METHYLPREDNISOLONE. [Suspect]
     Active Substance: METHYLPREDNISOLONE
     Indication: PRODUCT USED FOR UNKNOWN INDICATION
     Dosage: 125 MG (SINGLE)
     Route: 042

REACTIONS (4)
  - Blood pressure increased [Unknown]
  - Headache [Unknown]
  - Haemorrhage intracranial [Unknown]
  - Unresponsive to stimuli [Unknown]

NARRATIVE: CASE EVENT DATE: 20090910
